FAERS Safety Report 6299704-8 (Version None)
Quarter: 2009Q3

REPORT INFORMATION
  Report Type: 
  Country: None (occurrence: None)
  Receive Date: 20090806
  Receipt Date: 20090728
  Transmission Date: 20100115
  Serious: Yes (Other)
  Sender: FDA-Public Use
  Company Number: US-PFIZER INC-2009230232

PATIENT
  Sex: Female

DRUGS (4)
  1. SERTRALINE HCL [Suspect]
     Dates: end: 20090612
  2. AMOXICILLIN AND AMOXICILLIN TRIHYDRATE [Suspect]
  3. EPINEPHRINE [Suspect]
     Dosage: UNK
     Dates: start: 20090605
  4. CLARITIN [Concomitant]

REACTIONS (7)
  - CONFUSIONAL STATE [None]
  - FEELING ABNORMAL [None]
  - HYPERSENSITIVITY [None]
  - HYPERTENSION [None]
  - HYPOKALAEMIA [None]
  - PAROSMIA [None]
  - TINNITUS [None]
